FAERS Safety Report 6382916-2 (Version None)
Quarter: 2009Q3

REPORT INFORMATION
  Report Type: 
  Country: None (occurrence: None)
  Receive Date: 20090930
  Receipt Date: 20090918
  Transmission Date: 20100115
  Serious: Yes (Life-Threatening, Other)
  Sender: FDA-Public Use
  Company Number: PHHY2009GB41590

PATIENT
  Sex: Male
  Weight: 203.5 kg

DRUGS (15)
  1. RASILEZ [Suspect]
     Indication: HYPERTENSION
     Dosage: 150 MG, QD
     Dates: start: 20090129
  2. ASPIRIN [Concomitant]
     Dosage: 75 MG, QD
  3. ATORVASTATIN [Concomitant]
     Dosage: 400 MG, QD
  4. CLOPIDOGREL [Concomitant]
     Dosage: 75 MG, QD
  5. FUROSEMIDE [Concomitant]
     Dosage: 20 MG DAILY
  6. FYBOGEL [Concomitant]
     Dosage: 1 DF, BID
  7. NOVOMIX 30 [Concomitant]
  8. PARACETAMOL [Concomitant]
     Dosage: AS NECESSARY
  9. QUININE SULPHATE [Concomitant]
     Dosage: 300 MG, ONCE/SINGLE
  10. RABEPRAZOLE [Concomitant]
     Dosage: 20 MG, QD
  11. SERETIDE [Concomitant]
     Dosage: 250
  12. SILDENAFIL CITRATE [Concomitant]
     Dosage: 100 MG, PRN
  13. TAMSULOSIN HCL [Concomitant]
     Dosage: 400 UG, ONCE/SINGLE
  14. TRAVOPROST [Concomitant]
  15. LEVOBUNOLOL HCL [Concomitant]

REACTIONS (4)
  - BLOOD CREATININE INCREASED [None]
  - BLOOD PRESSURE DECREASED [None]
  - GLOMERULAR FILTRATION RATE DECREASED [None]
  - HYPERKALAEMIA [None]
